FAERS Safety Report 5161235-6 (Version None)
Quarter: 2006Q4

REPORT INFORMATION
  Report Type: 
  Country: None (occurrence: None)
  Receive Date: 20061130
  Receipt Date: 20060831
  Transmission Date: 20070319
  Serious: Yes (Other)
  Sender: FDA-Public Use
  Company Number: US-BRISTOL-MYERS SQUIBB COMPANY-13495114

PATIENT
  Age: 59 Year
  Sex: Male

DRUGS (4)
  1. ERBITUX [Suspect]
     Indication: COLORECTAL CANCER
     Route: 042
     Dates: start: 20060831, end: 20060831
  2. TYLENOL [Concomitant]
     Indication: PREMEDICATION
  3. BENADRYL [Concomitant]
     Indication: PREMEDICATION
     Route: 042
  4. DECADRON [Concomitant]
     Indication: PREMEDICATION
     Route: 042

REACTIONS (5)
  - BLOOD PRESSURE DECREASED [None]
  - COUGH [None]
  - DYSPNOEA [None]
  - ERYTHEMA [None]
  - PRURITUS [None]
